FAERS Safety Report 7399020-7 (Version None)
Quarter: 2011Q2

REPORT INFORMATION
  Report Type: 
  Country: None (occurrence: None)
  Receive Date: 20110407
  Receipt Date: 20110331
  Transmission Date: 20111010
  Serious: Yes (Hospitalization, Other)
  Sender: FDA-Public Use
  Company Number: JP-TEVA-269705ISR

PATIENT
  Sex: Male
  Weight: 59 kg

DRUGS (7)
  1. MAGNESIUM OXIDE [Concomitant]
     Dosage: 990 MG/DAY
     Dates: start: 20091030
  2. IRINOTECAN HCL [Suspect]
     Dosage: 90 MG
     Route: 042
     Dates: start: 20091030, end: 20110223
  3. APREPITANT [Concomitant]
     Dosage: 160 MG/DAY
     Dates: start: 20100801
  4. CISPLATIN [Suspect]
     Indication: GASTRIC CANCER
     Dosage: 45 MG
     Route: 042
     Dates: start: 20091030, end: 20100721
  5. APREPITANT [Concomitant]
     Dosage: 125 MG/DAY
     Dates: start: 20100801
  6. PANCREAZE [Concomitant]
     Dates: start: 20091030
  7. CISPLATIN [Suspect]
     Dosage: 35 MG
     Route: 042
     Dates: start: 20100804, end: 20110223

REACTIONS (4)
  - COMA [None]
  - DIZZINESS [None]
  - HICCUPS [None]
  - ALTERED STATE OF CONSCIOUSNESS [None]
